FAERS Safety Report 6020220-2 (Version None)
Quarter: 2008Q4

REPORT INFORMATION
  Report Type: 
  Country: None (occurrence: None)
  Receive Date: 20081226
  Receipt Date: 20081216
  Transmission Date: 20090506
  Serious: Yes (Hospitalization)
  Sender: FDA-Public Use
  Company Number: PHEH2008US11141

PATIENT
  Sex: Female

DRUGS (1)
  1. EXJADE [Suspect]
     Dosage: 1000 MG, QD

REACTIONS (5)
  - ABDOMINAL DISTENSION [None]
  - DEHYDRATION [None]
  - EPISTAXIS [None]
  - VOMITING [None]
  - WEIGHT INCREASED [None]
